FAERS Safety Report 8334583-6 (Version None)
Quarter: 2012Q2

REPORT INFORMATION
  Report Type: 
  Country: None (occurrence: None)
  Receive Date: 20120503
  Receipt Date: 20110321
  Transmission Date: 20120825
  Serious: No
  Sender: FDA-Public Use
  Company Number: US-TEVA-2011001808

PATIENT

DRUGS (1)
  1. NUVIGIL [Suspect]
     Route: 048
     Dates: start: 20110303

REACTIONS (2)
  - PRODUCT ODOUR ABNORMAL [None]
  - PRODUCT TASTE ABNORMAL [None]
